FAERS Safety Report 8347804-0 (Version None)
Quarter: 2012Q2

REPORT INFORMATION
  Report Type: 
  Country: None (occurrence: None)
  Receive Date: 20120509
  Receipt Date: 20120501
  Transmission Date: 20120825
  Serious: Yes (Hospitalization, Congenital Anomaly)
  Sender: FDA-Public Use
  Company Number: US-GLAXOSMITHKLINE-A0976795A

PATIENT
  Sex: Male
  Weight: 2.6 kg

DRUGS (1)
  1. PAXIL [Suspect]
     Indication: PRODUCT USED FOR UNKNOWN INDICATION
     Route: 064

REACTIONS (9)
  - FOETAL DISORDER [None]
  - INGUINAL HERNIA [None]
  - MATERNAL DRUGS AFFECTING FOETUS [None]
  - CHORDEE [None]
  - HYDROCELE [None]
  - FOETAL EXPOSURE DURING PREGNANCY [None]
  - CONGENITAL INGUINAL HERNIA [None]
  - PENILE TORSION [None]
  - CAESAREAN SECTION [None]
